FAERS Safety Report 6814085-6 (Version None)
Quarter: 2010Q3

REPORT INFORMATION
  Report Type: 
  Country: None (occurrence: None)
  Receive Date: 20100702
  Receipt Date: 20100208
  Transmission Date: 20110219
  Serious: No
  Sender: FDA-Public Use
  Company Number: A0676644A

PATIENT
  Age: 65 Year
  Sex: Male

DRUGS (6)
  1. ADVAIR DISKUS 100/50 [Suspect]
     Indication: ILL-DEFINED DISORDER
     Dosage: 2PUFF TWICE PER DAY
     Route: 055
     Dates: start: 20100201
  2. ADVAIR DISKUS 100/50 [Suspect]
     Dosage: 1PUFF TWICE PER DAY
     Route: 055
     Dates: start: 20070301, end: 20070401
  3. PROSTATE MEDICATION [Concomitant]
  4. CHOLESTEROL [Concomitant]
  5. ARTHRITIS MEDICATION [Concomitant]
  6. CLARITIN-D [Concomitant]

REACTIONS (3)
  - DRUG INEFFECTIVE [None]
  - EXPIRED DRUG ADMINISTERED [None]
  - PRODUCTIVE COUGH [None]
